FAERS Safety Report 20025516 (Version 1)
Quarter: 2021Q4

REPORT INFORMATION
  Report Type: Spontaneous
  Country: BR (occurrence: BR)
  Receive Date: 20211102
  Receipt Date: 20211102
  Transmission Date: 20220303
  Serious: Yes (Hospitalization)
  Sender: FDA-Public Use
  Company Number: BR-NOVOPROD-861040

PATIENT
  Sex: Female

DRUGS (8)
  1. FIASP [Suspect]
     Active Substance: INSULIN ASPART
     Indication: Type 1 diabetes mellitus
     Dosage: 2.5 IU (BEFORE COFFEE), 1 IU (BEFORE MEALS)
     Route: 065
  2. FIASP [Suspect]
     Active Substance: INSULIN ASPART
     Dosage: 3.5 IU (BEFORE COFFEE), 2 IU (BEFORE MEALS)
     Route: 065
  3. FIASP [Suspect]
     Active Substance: INSULIN ASPART
     Dosage: 4.5 IU (BEFORE COFFEE), 3 IU (BEFORE MEALS)
     Route: 065
  4. FIASP [Suspect]
     Active Substance: INSULIN ASPART
     Dosage: 4 IU (BEFORE COFFEE), 2.5 IU (BEFORE MEALS)
     Route: 065
  5. FIASP [Suspect]
     Active Substance: INSULIN ASPART
     Dosage: 3 IU (BEFORE COFFEE), 1.5 IU (BEFORE MEALS)
     Route: 065
  6. TRESIBA [Suspect]
     Active Substance: INSULIN DEGLUDEC
     Dosage: 5.5 IU, QD
     Route: 065
  7. TRESIBA [Suspect]
     Active Substance: INSULIN DEGLUDEC
     Dosage: 4.5 IU, QD
     Route: 065
  8. TRESIBA [Suspect]
     Active Substance: INSULIN DEGLUDEC
     Indication: Type 1 diabetes mellitus
     Dosage: 3 IU, QD
     Route: 058
     Dates: start: 20200904

REACTIONS (2)
  - Gastroenteritis [Unknown]
  - Blood glucose increased [Unknown]
